FAERS Safety Report 10104406 (Version 2)
Quarter: 2014Q2

REPORT INFORMATION
  Report Type: Spontaneous
  Country: US (occurrence: US)
  Receive Date: 20140424
  Receipt Date: 20140501
  Transmission Date: 20141212
  Serious: Yes (Other)
  Sender: FDA-Public Use
  Company Number: CHPA2014US005452

PATIENT
  Age: 80 Year
  Sex: Female

DRUGS (3)
  1. VOLTAREN GEL [Suspect]
     Indication: ARTHROPATHY
     Dosage: SPARINGLY, UNK
     Route: 061
  2. VOLTAREN GEL [Suspect]
     Indication: OFF LABEL USE
  3. CETIRIZINE [Concomitant]

REACTIONS (2)
  - Colon cancer [Unknown]
  - Wrong technique in drug usage process [Unknown]
